FAERS Safety Report 6516544-2 (Version None)
Quarter: 2009Q4

REPORT INFORMATION
  Report Type: 
  Country: None (occurrence: None)
  Receive Date: 20091223
  Receipt Date: 20091215
  Transmission Date: 20100525
  Serious: Yes (Other)
  Sender: FDA-Public Use
  Company Number: US-JNJFOC-20061004201

PATIENT
  Sex: Female

DRUGS (2)
  1. RISPERDAL [Suspect]
     Indication: SCHIZOAFFECTIVE DISORDER
  2. RISPERDAL [Suspect]
     Indication: DEPRESSION

REACTIONS (4)
  - DYSKINESIA [None]
  - HYPERPROLACTINAEMIA [None]
  - PITUITARY TUMOUR [None]
  - TYPE 2 DIABETES MELLITUS [None]
